FAERS Safety Report 6713736-4 (Version None)
Quarter: 2010Q2

REPORT INFORMATION
  Report Type: 
  Country: None (occurrence: None)
  Receive Date: 20100506
  Receipt Date: 20100427
  Transmission Date: 20101027
  Serious: Yes (Death, Hospitalization, Other)
  Sender: FDA-Public Use
  Company Number: US-BAXTER-2010BH011337

PATIENT
  Age: 63 Year
  Sex: Male

DRUGS (3)
  1. DIANEAL [Suspect]
     Indication: PERITONEAL DIALYSIS
     Route: 033
     Dates: start: 20091201, end: 20100322
  2. DIANEAL [Suspect]
     Route: 033
     Dates: start: 20080201, end: 20090101
  3. DIANEAL [Suspect]
     Indication: PERITONEAL DIALYSIS
     Route: 033
     Dates: start: 20090101, end: 20091201

REACTIONS (3)
  - CARDIAC DISORDER [None]
  - LOSS OF CONSCIOUSNESS [None]
  - ULTRAFILTRATION FAILURE [None]
